FAERS Safety Report 11050638 (Version 1)
Quarter: 2015Q2

REPORT INFORMATION
  Report Type: Spontaneous
  Country: JP (occurrence: None)
  Receive Date: 20150417
  Receipt Date: 20150417
  Transmission Date: 20150821
  Serious: Yes (Death, Other)
  Sender: FDA-Public Use
  Company Number: 2014FE02810

PATIENT
  Age: 89 Year
  Sex: Male

DRUGS (2)
  1. PROSEXOL [Suspect]
     Active Substance: ETHINYL ESTRADIOL
     Indication: PRODUCT USED FOR UNKNOWN INDICATION
     Route: 048
     Dates: start: 201502
  2. GONAX [Suspect]
     Active Substance: DEGARELIX
     Indication: PROSTATE CANCER
     Route: 058
     Dates: start: 20130313, end: 20130313

REACTIONS (4)
  - Biliary tract disorder [None]
  - Urinary tract infection [None]
  - Injection site pain [None]
  - Pyrexia [None]

NARRATIVE: CASE EVENT DATE: 20140520
